FAERS Safety Report 23588552 (Version 1)
Quarter: 2024Q1

REPORT INFORMATION
  Report Type: Spontaneous
  Country: GB (occurrence: GB)
  Receive Date: 20240302
  Receipt Date: 20240302
  Transmission Date: 20240410
  Serious: Yes (Other)
  Sender: FDA-Public Use
  Company Number: None

PATIENT
  Age: 59 Year
  Sex: Female
  Weight: 107 kg

DRUGS (24)
  1. ALLOPURINOL [Suspect]
     Active Substance: ALLOPURINOL
     Indication: Gout
     Dates: start: 20230831
  2. AMLODIPINE [Concomitant]
     Active Substance: AMLODIPINE BESYLATE
     Indication: Hypertension
     Dates: start: 20170809
  3. ASPIRIN [Concomitant]
     Active Substance: ASPIRIN
     Dates: start: 20200325
  4. CAPSAICIN [Concomitant]
     Active Substance: CAPSAICIN
     Dosage: APPLY 3-4 TIMES/DAY FOR JOINT PAINS. WASH HANDS...
     Dates: start: 20210211
  5. CETRABEN [Concomitant]
     Dosage: APPLY AS REGULAR MOISTURISER AND AS SOAP SUBSTI...
     Dates: start: 20171017
  6. CODEINE PHOSPHATE [Concomitant]
     Active Substance: CODEINE PHOSPHATE
     Dosage: TAKE ONE OR TWO UP TO FOUR TIMES DAILY WHEN NEE...
     Dates: start: 20180918
  7. COLCHICINE [Concomitant]
     Active Substance: COLCHICINE
     Dosage: TAKE ONE 1 - 2 TIMES A DAY (FOR UP TO A MAX. OF...
     Dates: start: 20230831, end: 20231123
  8. PEPPERMINT OIL [Concomitant]
     Active Substance: PEPPERMINT OIL
     Dates: start: 20170820
  9. CYANOCOBALAMIN [Concomitant]
     Active Substance: CYANOCOBALAMIN
     Dosage: BETWEEN MEALS FOR 6 MONTH...
     Dates: start: 20221031
  10. DOXYCYCLINE [Concomitant]
     Active Substance: DOXYCYCLINE
     Dosage: TWO NOW THEN ONE DAILY
     Dates: start: 20240125, end: 20240130
  11. FLUOXETINE [Concomitant]
     Active Substance: FLUOXETINE HYDROCHLORIDE
     Dates: start: 20200114
  12. BECLOMETHASONE\FORMOTEROL [Concomitant]
     Active Substance: BECLOMETHASONE\FORMOTEROL
     Dosage: VIA AEROCHAMBE...
     Dates: start: 20200127
  13. NITROGLYCERIN [Concomitant]
     Active Substance: NITROGLYCERIN
     Dosage: USE ONE SPRAY UNDER THE TONGUE AS DIRECTED WHEN...
     Route: 060
     Dates: start: 20210203
  14. HYDROCORTISONE [Concomitant]
     Active Substance: HYDROCORTISONE
     Dates: start: 20200109
  15. INDAPAMIDE [Concomitant]
     Active Substance: INDAPAMIDE
     Dosage: EACH MORNING
     Dates: start: 20181031
  16. ISOSORBIDE MONONITRATE [Concomitant]
     Active Substance: ISOSORBIDE MONONITRATE
     Dosage: IN THE MORNING AND ONE 6 HOURS LATER
     Dates: start: 20200421
  17. OTOMIZE [Concomitant]
     Dosage: INTO EACH AFFECTED ...
     Dates: start: 20240125, end: 20240201
  18. ACETAMINOPHEN [Concomitant]
     Active Substance: ACETAMINOPHEN
     Dosage: TAKE TWO TABLETS UP TO FOUR TIMES A DAY WHEN RE...
     Dates: start: 20180529
  19. PREGABALIN [Concomitant]
     Active Substance: PREGABALIN
     Dates: start: 20190522
  20. RAMIPRIL [Concomitant]
     Active Substance: RAMIPRIL
     Dates: start: 20160809
  21. ROSUVASTATIN [Concomitant]
     Active Substance: ROSUVASTATIN
     Dates: start: 20210211
  22. SENNA [Concomitant]
     Active Substance: SENNA LEAF\SENNOSIDES\SENNOSIDES A AND B
     Dosage: TAKE 1 OR 2 AT NIGHT TO TREAT CONSTIPATION.
     Dates: start: 20180511
  23. SPIRIVA [Concomitant]
     Active Substance: TIOTROPIUM BROMIDE MONOHYDRATE
     Dates: start: 20210623
  24. TRAMADOL [Concomitant]
     Active Substance: TRAMADOL\TRAMADOL HYDROCHLORIDE
     Dosage: TAKE 1 OR 2 UP TO EVERY 6 HOURS WHEN NEEDED. MA...
     Dates: start: 20201014

REACTIONS (2)
  - Nausea [Recovered/Resolved]
  - Chest pain [Recovered/Resolved]
